FAERS Safety Report 21692172 (Version 2)
Quarter: 2023Q1

REPORT INFORMATION
  Report Type: Other
  Country: IT (occurrence: None)
  Receive Date: 20221207
  Receipt Date: 20230201
  Transmission Date: 20230418
  Serious: Yes (Other)
  Sender: FDA-Public Use
  Company Number: IT-ROCHE-2698057

PATIENT
  Age: 67 Year
  Sex: Male

DRUGS (1)
  1. OBINUTUZUMAB [Suspect]
     Active Substance: OBINUTUZUMAB
     Indication: Follicular lymphoma
     Dosage: 1000 MILLIGRAM (MG) INTRAVENOUSLY (IV) ON DAY 1, 8, 15 OF CYCLE 1 AN DAY 1 OF CYCLES 2-6 OR 2-8. MAI
     Route: 042
     Dates: start: 20200204

REACTIONS (6)
  - Latent tuberculosis [Recovering/Resolving]
  - Neutrophil count decreased [Recovered/Resolved]
  - Deep vein thrombosis [Recovering/Resolving]
  - Hypocalcaemia [Recovered/Resolved]
  - Dyspnoea [Unknown]
  - Gastritis [Unknown]

NARRATIVE: CASE EVENT DATE: 20200213
